FAERS Safety Report 5037334-6 (Version None)
Quarter: 2006Q2

REPORT INFORMATION
  Report Type: 
  Country: None (occurrence: None)
  Receive Date: 20060606
  Receipt Date: 20051230
  Transmission Date: 20061013
  Serious: Yes (Hospitalization)
  Sender: FDA-Public Use
  Company Number: 05-0166TG

PATIENT
  Age: 76 Year
  Sex: Male

DRUGS (5)
  1. TRIGLIDE [Suspect]
     Indication: HYPERCHOLESTEROLAEMIA
     Dosage: 160MG, PO
     Route: 048
  2. CARDURA [Concomitant]
  3. ASPIRIN [Concomitant]
  4. TRIGLIDE [Concomitant]
  5. PLAVIX [Concomitant]

REACTIONS (2)
  - ANGIOPATHY [None]
  - CEREBROVASCULAR ACCIDENT [None]
